FAERS Safety Report 9297583 (Version 1)
Quarter: 2013Q2

REPORT INFORMATION
  Report Type: Spontaneous
  Country: US (occurrence: US)
  Receive Date: 20130520
  Receipt Date: 20130520
  Transmission Date: 20140414
  Serious: Yes (Other)
  Sender: FDA-Public Use
  Company Number: US-PFIZER INC-2013154326

PATIENT
  Sex: Female
  Weight: 68 kg

DRUGS (6)
  1. NEURONTIN [Suspect]
     Indication: BACK PAIN
     Dosage: 800 MG, 4X/DAY
  2. NEURONTIN [Suspect]
     Indication: INTERVERTEBRAL DISC DEGENERATION
  3. NEURONTIN [Suspect]
     Indication: NERVE COMPRESSION
  4. IBUPROFEN [Concomitant]
     Dosage: 800 MG, AS NEEDED
  5. ATIVAN [Concomitant]
     Indication: ANXIETY
     Dosage: 1 MG, AS NEEDED
  6. INVEGA [Concomitant]
     Indication: ANXIETY
     Dosage: 9 MG, 1X/DAY

REACTIONS (2)
  - Convulsion [Unknown]
  - Back pain [Unknown]
